FAERS Safety Report 22278651 (Version 1)
Quarter: 2023Q2

REPORT INFORMATION
  Report Type: Spontaneous
  Country: US (occurrence: US)
  Receive Date: 20230503
  Receipt Date: 20230503
  Transmission Date: 20230722
  Serious: No
  Sender: FDA-Public Use
  Company Number: US-TORRENT-00012628

PATIENT
  Sex: Female

DRUGS (1)
  1. ESCITALOPRAM OXALATE [Suspect]
     Active Substance: ESCITALOPRAM OXALATE
     Indication: Neuropathy peripheral
     Dosage: UNKNOWN
     Route: 065

REACTIONS (3)
  - Malaise [Unknown]
  - Off label use [Unknown]
  - Product prescribing error [Unknown]
